FAERS Safety Report 6717637 (Version 3)
Quarter: 2013Q1

REPORT INFORMATION
  Report Type: Spontaneous
  Country: US (occurrence: US)
  Receive Date: 20080804
  Receipt Date: 20130204
  Transmission Date: 20140127
  Serious: Yes (Other)
  Sender: FDA-Public Use
  Company Number: US-RB-002666-08

PATIENT
  Age: 36 Year
  Sex: Female

DRUGS (5)
  1. SUBOXONE [Suspect]
     Route: 060
     Dates: start: 20080104
  2. SUBOXONE [Suspect]
     Indication: DRUG DEPENDENCE
     Route: 060
  3. SEROQUEL [Suspect]
     Indication: SLEEP DISORDER
     Route: 065
  4. TOPAMAX [Suspect]
     Indication: MIGRAINE
     Route: 065
  5. NEURONTIN [Suspect]
     Indication: MIGRAINE
     Route: 065

REACTIONS (4)
  - Exposure during pregnancy [Recovered/Resolved]
  - Placenta praevia [Recovered/Resolved]
  - Premature labour [Recovered/Resolved]
  - Premature delivery [Recovered/Resolved]
